FAERS Safety Report 20531931 (Version 1)
Quarter: 2022Q1

REPORT INFORMATION
  Report Type: Spontaneous
  Country: US (occurrence: None)
  Receive Date: 20220301
  Receipt Date: 20220301
  Transmission Date: 20220423
  Serious: Yes (Other)
  Sender: FDA-Public Use
  Company Number: US-MLMSERVICE-20220215-3375770-1

PATIENT
  Age: 26 Year
  Sex: Male

DRUGS (1)
  1. FLUCONAZOLE [Suspect]
     Active Substance: FLUCONAZOLE
     Indication: Coccidioidomycosis
     Dosage: UNKNOWN
     Route: 065

REACTIONS (4)
  - Asthenia [Recovering/Resolving]
  - Drug level above therapeutic [Unknown]
  - Syncope [Unknown]
  - Toxicity to various agents [Unknown]
